FAERS Safety Report 13421172 (Version 1)
Quarter: 2017Q2

REPORT INFORMATION
  Report Type: Spontaneous
  Country: US (occurrence: US)
  Receive Date: 20170410
  Receipt Date: 20170410
  Transmission Date: 20170830
  Serious: No
  Sender: FDA-Public Use
  Company Number: US-TAKEDA-2017MPI003132

PATIENT
  Age: 74 Year
  Sex: Male
  Weight: 98 kg

DRUGS (6)
  1. DARZALEX [Suspect]
     Active Substance: DARATUMUMAB
     Indication: PLASMA CELL MYELOMA
     Dosage: 1600 MG, UNK
     Route: 042
     Dates: start: 20161209, end: 20161209
  2. DARZALEX [Suspect]
     Active Substance: DARATUMUMAB
     Dosage: 1600 MG, UNK
     Route: 042
     Dates: start: 20170209
  3. DARZALEX [Suspect]
     Active Substance: DARATUMUMAB
     Dosage: UNK
     Route: 042
     Dates: start: 20170210
  4. VELCADE [Suspect]
     Active Substance: BORTEZOMIB
     Indication: PRODUCT USED FOR UNKNOWN INDICATION
     Dosage: 2.6 MG, 2/WEEK
     Route: 065
  5. DARZALEX [Suspect]
     Active Substance: DARATUMUMAB
     Dosage: UNK
     Route: 042
     Dates: start: 20161209
  6. DARZALEX [Suspect]
     Active Substance: DARATUMUMAB
     Dosage: 1600 MG, UNK
     Route: 042
     Dates: start: 20170209

REACTIONS (4)
  - Rhinorrhoea [Recovered/Resolved]
  - Infusion related reaction [Recovered/Resolved]
  - Cough [Recovered/Resolved]
  - Nasal congestion [Recovered/Resolved]

NARRATIVE: CASE EVENT DATE: 20170209
